FAERS Safety Report 7622777-4 (Version None)
Quarter: 2011Q3

REPORT INFORMATION
  Report Type: 
  Country: None (occurrence: None)
  Receive Date: 20110719
  Receipt Date: 20110719
  Transmission Date: 20111222
  Serious: Yes (Disabling)
  Sender: FDA-Public Use
  Company Number: None

PATIENT
  Sex: Male
  Weight: 79.8331 kg

DRUGS (2)
  1. PRAVASTATIN [Suspect]
     Dosage: 1 TABLET DAILY
     Dates: start: 20081017, end: 20101207
  2. ZOCOR [Suspect]
     Dosage: 1 TABLET DAILY
     Dates: start: 20101207, end: 20110614

REACTIONS (2)
  - NECK PAIN [None]
  - MUSCULOSKELETAL PAIN [None]
